FAERS Safety Report 18236102 (Version 1)
Quarter: 2020Q3

REPORT INFORMATION
  Report Type: Spontaneous
  Country: US (occurrence: US)
  Receive Date: 20200906
  Receipt Date: 20200906
  Transmission Date: 20201103
  Serious: No
  Sender: FDA-Public Use
  Company Number: US-GLAXOSMITHKLINE-US2020AMR174976

PATIENT
  Sex: Female

DRUGS (1)
  1. ZEJULA [Suspect]
     Active Substance: NIRAPARIB
     Indication: PRODUCT USED FOR UNKNOWN INDICATION
     Dosage: 200 MG, QD
     Route: 048
     Dates: start: 20200519

REACTIONS (5)
  - Constipation [Unknown]
  - Insomnia [Unknown]
  - Headache [Unknown]
  - Hypertension [Unknown]
  - Nausea [Unknown]
